FAERS Safety Report 7718566-2 (Version None)
Quarter: 2011Q3

REPORT INFORMATION
  Report Type: 
  Country: None (occurrence: None)
  Receive Date: 20110830
  Receipt Date: 20110816
  Transmission Date: 20111222
  Serious: Yes (Other)
  Sender: FDA-Public Use
  Company Number: US-ELI_LILLY_AND_COMPANY-US201105007994

PATIENT
  Sex: Male

DRUGS (2)
  1. FORTEO [Suspect]
     Indication: OSTEOPOROSIS
     Dosage: 20 UG, QD
     Route: 065
     Dates: start: 20110405
  2. FORTEO [Suspect]
     Dosage: 20 UG, QD
     Route: 065

REACTIONS (3)
  - INJECTION SITE HAEMATOMA [None]
  - GLAUCOMA [None]
  - BLINDNESS [None]
